FAERS Safety Report 6549621-0 (Version None)
Quarter: 2010Q1

REPORT INFORMATION
  Report Type: 
  Country: None (occurrence: None)
  Receive Date: 20100125
  Receipt Date: 20100118
  Transmission Date: 20100710
  Serious: Yes (Hospitalization)
  Sender: FDA-Public Use
  Company Number: FR-B.I. PHARMACEUTICALS,INC./RIDGEFIELD-2010-FF-00044FF

PATIENT
  Age: 83 Year
  Sex: Male

DRUGS (3)
  1. MECIR LP 0.4 [Suspect]
     Dosage: 0.4 MG
     Route: 048
     Dates: end: 20091001
  2. XANAX [Suspect]
     Dosage: 1.5 MG
     Route: 048
  3. STABLON [Suspect]
     Dosage: 25 MG
     Route: 048
     Dates: end: 20091001

REACTIONS (3)
  - CONFUSIONAL STATE [None]
  - FALL [None]
  - HYPONATRAEMIA [None]
